FAERS Safety Report 5824493-8 (Version None)
Quarter: 2008Q3

REPORT INFORMATION
  Report Type: 
  Country: None (occurrence: None)
  Receive Date: 20080722
  Receipt Date: 20080707
  Transmission Date: 20090109
  Serious: Yes (Life-Threatening)
  Sender: FDA-Public Use
  Company Number: DSJ-2008-07355

PATIENT
  Age: 92 Year
  Sex: Female

DRUGS (4)
  1. OLMETEC (OLMESARTAN MEDOXOMIL) (TABLET) (OLMESARTAN L MEDOXOMIL) [Suspect]
     Indication: HYPERTENSION
     Dosage: 10 MG (10 MG, 1 IN 1 D), PER ORAL
     Route: 048
     Dates: start: 20080602, end: 20080630
  2. AMLODIN  OD(AMLODIPINE BESILATE) (TABLET) (AMLODIPINE BESILATE) [Suspect]
     Indication: HYPERTENSION
     Dosage: 5 MG (5 MG , 1 IN 1 D), PER ORAL
     Route: 048
     Dates: start: 20080602, end: 20080617
  3. MERISLON (BETAHISTINE HYDROCHLORIDE)(TABLET)(BETAHISTINE HYDROCHLORIDE [Concomitant]
  4. CEPHADOL (DIFENIDOL HYDROCHLORIDE)(TABLET)(DIFENIDOL HYDROCHLORIDE) [Concomitant]

REACTIONS (1)
  - PLATELET COUNT DECREASED [None]
